FAERS Safety Report 9252801 (Version 1)
Quarter: 2013Q2

REPORT INFORMATION
  Report Type: Spontaneous
  Country: US (occurrence: US)
  Receive Date: 20130424
  Receipt Date: 20130424
  Transmission Date: 20140414
  Serious: No
  Sender: FDA-Public Use
  Company Number: US-BAUSCH-BL-2012-001400

PATIENT
  Age: 76 Year
  Sex: Female

DRUGS (7)
  1. LOTEMAX (LOTEPREDNOL ETABONATE OPHTHALMIC SUSPENSION 0.5%) [Suspect]
     Indication: DRY EYE
     Dosage: 1 DROP; TWICE A DAY; OPHTHALMIC
     Route: 047
     Dates: start: 201205, end: 201208
  2. LOTEMAX (LOTEPREDNOL ETABONATE OPHTHALMIC SUSPENSION 0.5%) [Suspect]
     Indication: OFF LABEL USE
     Dosage: 1 DROP; DAILY; OPHTHALMIC
     Route: 047
     Dates: start: 201208
  3. WARFARIN [Concomitant]
     Indication: ATRIAL FIBRILLATION
     Dosage: 1 DOSAGE FORM; DAILY; ORAL
     Route: 048
  4. ASCORBIC ACID [Concomitant]
  5. VITAMIN B COMPLEX [Concomitant]
  6. ERGOCALCIFEROL [Concomitant]
  7. GLUCOSAMINE HYDROCHLORIDE [Concomitant]

REACTIONS (2)
  - Tinnitus [Not Recovered/Not Resolved]
  - Hypoacusis [Recovered/Resolved]
